FAERS Safety Report 5757755-3 (Version None)
Quarter: 2008Q2

REPORT INFORMATION
  Report Type: 
  Country: None (occurrence: None)
  Receive Date: 20080529
  Receipt Date: 20080515
  Transmission Date: 20081010
  Serious: Yes (Hospitalization)
  Sender: FDA-Public Use
  Company Number: 001027

PATIENT
  Age: 56 Year
  Sex: Male

DRUGS (3)
  1. PLETAL [Suspect]
     Indication: CEREBRAL INFARCTION
     Dosage: 100 MG, BID
     Route: 048
     Dates: start: 20060929, end: 20080426
  2. MUCOSTA (REBAMIPIDE) TABLET [Concomitant]
  3. MICARDIS [Concomitant]

REACTIONS (2)
  - GASTRIC ULCER HAEMORRHAGE [None]
  - SYNCOPE [None]
